FAERS Safety Report 14819765 (Version 3)
Quarter: 2019Q1

REPORT INFORMATION
  Report Type: Report from Study
  Country: SI (occurrence: SI)
  Receive Date: 20180427
  Receipt Date: 20190128
  Transmission Date: 20190417
  Serious: Yes (Hospitalization, Disabling)
  Sender: FDA-Public Use
  Company Number: SI-ROCHE-2110958

PATIENT
  Age: 60 Year
  Sex: Male
  Weight: 91 kg

DRUGS (21)
  1. DEXAMETHASON [Concomitant]
     Active Substance: DEXAMETHASONE
     Indication: MUSCULOSKELETAL PAIN
     Route: 042
     Dates: start: 20180319, end: 20180319
  2. XYLOCAINE [Concomitant]
     Active Substance: LIDOCAINE HYDROCHLORIDE
     Indication: MUSCULOSKELETAL PAIN
     Dosage: 1 OTHER
     Route: 014
     Dates: start: 20180319, end: 20180319
  3. TARGINACT [Concomitant]
     Active Substance: NALOXONE HYDROCHLORIDE\OXYCODONE HYDROCHLORIDE
     Indication: PAIN
     Route: 048
     Dates: start: 20180425
  4. ANALGIN (SLOVENIA) [Concomitant]
     Indication: MUSCULOSKELETAL PAIN
     Route: 048
     Dates: start: 20180328, end: 20180425
  5. KAMIREN XL [Concomitant]
     Indication: HYPERTENSION
     Route: 048
  6. LEKADOL [Concomitant]
     Active Substance: ACETAMINOPHEN
     Indication: ARTHRALGIA
     Route: 048
     Dates: start: 20180117, end: 20180328
  7. FLOSTERON [Concomitant]
     Indication: MUSCULOSKELETAL PAIN
     Route: 014
     Dates: start: 20180319, end: 20180319
  8. GEMCITABINE [Suspect]
     Active Substance: GEMCITABINE\GEMCITABINE HYDROCHLORIDE
     Indication: TRANSITIONAL CELL CARCINOMA
     Dosage: DATE OF MOST RECENT DOSE OF GEMCITABINE PRIOR TO SAE ONSET ON 04/OCT/2017, 2100 MG/M2?ON DAY 1 AND D
     Route: 042
     Dates: start: 20170614
  9. GLICLADA [Concomitant]
     Active Substance: GLICLAZIDE
     Indication: DIABETES MELLITUS
     Route: 048
  10. XALATAN [Concomitant]
     Active Substance: LATANOPROST
     Indication: GLAUCOMA
     Route: 047
  11. EXFORGE [Concomitant]
     Active Substance: AMLODIPINE BESYLATE\VALSARTAN
     Indication: HYPERTENSION
     Route: 048
  12. LINOLA UREA [Concomitant]
     Dosage: 1
     Route: 061
     Dates: start: 20180328, end: 20180418
  13. CARBOPLATIN. [Suspect]
     Active Substance: CARBOPLATIN
     Indication: TRANSITIONAL CELL CARCINOMA
     Dosage: ADMINISTERED AT DOSES TO ACHIEVE AREA UNDER THE CONCENTRATION-TIME CURVE (AUC) OF 4.5 MILLIGRAM PER
     Route: 042
     Dates: start: 20170614
  14. LAMISIL [Concomitant]
     Active Substance: TERBINAFINE HYDROCHLORIDE
     Indication: TINEA PEDIS
     Dosage: 1
     Route: 061
     Dates: start: 20180328, end: 20180418
  15. NEODOLPASSE [Concomitant]
     Indication: ARTHRALGIA
     Route: 042
     Dates: start: 20180322, end: 20180322
  16. NEODOLPASSE [Concomitant]
     Indication: PAIN
     Route: 042
     Dates: start: 20180418, end: 20180418
  17. SEVREDOL [Concomitant]
     Active Substance: MORPHINE
     Indication: PAIN
     Route: 048
     Dates: start: 20180425
  18. DORETA [Concomitant]
     Active Substance: ACETAMINOPHEN\TRAMADOL HYDROCHLORIDE
     Indication: MUSCULOSKELETAL PAIN
     Route: 048
     Dates: start: 20180328, end: 20180425
  19. ATEZOLIZUMAB. [Suspect]
     Active Substance: ATEZOLIZUMAB
     Indication: TRANSITIONAL CELL CARCINOMA
     Dosage: DATE OF MOST RECENT DOSE OF BLINDED  ATEZOLIZUMAB ON  28/MAR/2018
     Route: 042
     Dates: start: 20170614
  20. BRUFEN [Concomitant]
     Active Substance: IBUPROFEN
     Indication: MUSCULOSKELETAL PAIN
     Route: 048
     Dates: start: 20180308, end: 20180328
  21. AMOKSIKLAV [Concomitant]
     Active Substance: AMOXICILLIN\CLAVULANATE POTASSIUM
     Indication: URINARY TRACT INFECTION
     Route: 048
     Dates: start: 20180418, end: 20180425

REACTIONS (1)
  - Arthritis [Not Recovered/Not Resolved]

NARRATIVE: CASE EVENT DATE: 20180418
